FAERS Safety Report 7490847-X (Version None)
Quarter: 2011Q2

REPORT INFORMATION
  Report Type: 
  Country: None (occurrence: None)
  Receive Date: 20110519
  Receipt Date: 20110506
  Transmission Date: 20111010
  Serious: Yes (Other)
  Sender: FDA-Public Use
  Company Number: US-JNJFOC-20110505049

PATIENT
  Age: 57 Year
  Sex: Male

DRUGS (8)
  1. RISPERDAL CONSTA [Suspect]
     Route: 030
     Dates: start: 20110101, end: 20110101
  2. RISPERDAL CONSTA [Suspect]
     Route: 030
     Dates: start: 20110101, end: 20110101
  3. PAXIL [Concomitant]
     Route: 048
  4. XANAX [Concomitant]
     Route: 048
  5. ^BLOOD PRESSURE^ MEDICATION [Concomitant]
     Indication: HYPERTENSION
     Route: 048
  6. RISPERDAL CONSTA [Suspect]
     Indication: SCHIZOPHRENIA
     Route: 030
  7. ALL OTHER THERAPEUTIC PRODUCTS [Concomitant]
     Route: 048
  8. RISPERDAL CONSTA [Suspect]
     Route: 030
     Dates: end: 20110101

REACTIONS (2)
  - HEPATIC NEOPLASM MALIGNANT [None]
  - MEMORY IMPAIRMENT [None]
